FAERS Safety Report 20219216 (Version 1)
Quarter: 2021Q4

REPORT INFORMATION
  Report Type: Spontaneous
  Country: US (occurrence: None)
  Receive Date: 20211222
  Receipt Date: 20211222
  Transmission Date: 20220303
  Serious: No
  Sender: FDA-Public Use
  Company Number: None

PATIENT
  Age: 74 Year
  Sex: Female
  Weight: 70 kg

DRUGS (1)
  1. PRIVIGEN [Suspect]
     Active Substance: HUMAN IMMUNOGLOBULIN G
     Dates: start: 20211218

REACTIONS (4)
  - Hypotension [None]
  - Pruritus [None]
  - Rash erythematous [None]
  - Infusion related reaction [None]

NARRATIVE: CASE EVENT DATE: 20211218
